FAERS Safety Report 4564487-6 (Version None)
Quarter: 2005Q1

REPORT INFORMATION
  Report Type: 
  Country: None (occurrence: None)
  Receive Date: 20050128
  Receipt Date: 20050124
  Transmission Date: 20050727
  Serious: Yes (Hospitalization)
  Sender: FDA-Public Use
  Company Number: US-BRISTOL-MYERS SQUIBB COMPANY-12837324

PATIENT
  Sex: Male

DRUGS (3)
  1. ERBITUX [Suspect]
     Indication: COLORECTAL CANCER METASTATIC
     Route: 042
     Dates: start: 20050121
  2. FLUOROURACIL [Concomitant]
     Dates: start: 20050121
  3. IRINOTECAN HCL [Concomitant]
     Dates: start: 20050121

REACTIONS (3)
  - MENINGITIS ASEPTIC [None]
  - NAUSEA [None]
  - VOMITING [None]
